FAERS Safety Report 7652360-6 (Version None)
Quarter: 2011Q3

REPORT INFORMATION
  Report Type: 
  Country: None (occurrence: None)
  Receive Date: 20110803
  Receipt Date: 20090513
  Transmission Date: 20111222
  Serious: Yes (Other)
  Sender: FDA-Public Use
  Company Number: US-BAYER-200832123NA

PATIENT
  Sex: Female
  Weight: 66 kg

DRUGS (12)
  1. MULTIHANCE [Suspect]
  2. OPTIMARK [Suspect]
  3. ELOCON [Concomitant]
  4. VICODIN [Concomitant]
  5. CORTISONE ACETATE [Concomitant]
  6. ENALAPRIL MALEATE [Concomitant]
  7. PREMARIN [Concomitant]
  8. OMNISCAN [Suspect]
  9. KEFLEX [Concomitant]
  10. MAXZIDE [Concomitant]
  11. MAGNEVIST [Suspect]
     Indication: NUCLEAR MAGNETIC RESONANCE IMAGING
     Dosage: UNK UNK, ONCE
     Dates: start: 19911030, end: 19911030
  12. PROHANCE [Suspect]

REACTIONS (2)
  - INJURY [None]
  - NEPHROGENIC SYSTEMIC FIBROSIS [None]
